FAERS Safety Report 5070180-6 (Version None)
Quarter: 2006Q3

REPORT INFORMATION
  Report Type: 
  Country: None (occurrence: None)
  Receive Date: 20060803
  Receipt Date: 20060627
  Transmission Date: 20061208
  Serious: Yes (Hospitalization)
  Sender: FDA-Public Use
  Company Number: JP-BOEHRINGER INGELHEIM PHARMACEUTICALS, INC.-2006-BP-07719NB

PATIENT
  Sex: Female
  Weight: 29 kg

DRUGS (7)
  1. MEXITIL [Suspect]
     Indication: CARDIAC FAILURE
     Route: 048
     Dates: start: 20060523, end: 20060606
  2. ARICEPT [Concomitant]
     Route: 048
     Dates: start: 20060223
  3. GLIMICRON [Concomitant]
     Route: 048
     Dates: start: 20041124
  4. LASIX [Concomitant]
     Route: 048
     Dates: start: 20041124
  5. LANIRAPID [Concomitant]
     Route: 048
     Dates: start: 20041124, end: 20060607
  6. ALDACTONE [Concomitant]
     Route: 048
     Dates: start: 20041124, end: 20060607
  7. DIGOXIN [Concomitant]
     Route: 048
     Dates: start: 20060606

REACTIONS (1)
  - RENAL FAILURE [None]
